FAERS Safety Report 14236087 (Version 1)
Quarter: 2017Q4

REPORT INFORMATION
  Report Type: Spontaneous
  Country: US (occurrence: US)
  Receive Date: 20171129
  Receipt Date: 20171129
  Transmission Date: 20180321
  Serious: Yes (Other)
  Sender: FDA-Public Use
  Company Number: US-JAZZ-2017-US-015629

PATIENT
  Age: 44 Year
  Sex: Male

DRUGS (2)
  1. PRIALT [Suspect]
     Active Substance: ZICONOTIDE ACETATE
     Indication: BACK PAIN
     Dosage: UNK ?G, UNK
     Route: 037
  2. PRIALT [Suspect]
     Active Substance: ZICONOTIDE ACETATE
     Indication: SPINAL PAIN

REACTIONS (3)
  - Unevaluable event [Not Recovered/Not Resolved]
  - Surgery [Unknown]
  - Back pain [Not Recovered/Not Resolved]

NARRATIVE: CASE EVENT DATE: 2010
